FAERS Safety Report 16254050 (Version 1)
Quarter: 2019Q2

REPORT INFORMATION
  Report Type: Spontaneous
  Country: DE (occurrence: DE)
  Receive Date: 20190430
  Receipt Date: 20190430
  Transmission Date: 20190711
  Serious: Yes (Other)
  Sender: FDA-Public Use
  Company Number: PHHY2019DE094780

PATIENT
  Age: 63 Year
  Sex: Female
  Weight: 69 kg

DRUGS (6)
  1. VALSARTAN. [Suspect]
     Active Substance: VALSARTAN
     Indication: PRODUCT USED FOR UNKNOWN INDICATION
     Dosage: 1 DF, QD (320MG VALSARTAN AND 12.5 MG HYDROCHLOROTHIAZIDE)
     Route: 065
     Dates: start: 201203, end: 201208
  2. VALSARTAN COMP. 80 MG/12,5 MG FILMTABLETTEN [Suspect]
     Active Substance: HYDROCHLOROTHIAZIDE\VALSARTAN
     Indication: PRODUCT USED FOR UNKNOWN INDICATION
     Dosage: 1 DF, QD (320 MG/12.5 MG)
     Route: 065
     Dates: start: 201507, end: 201801
  3. CO-DIOVAN [Suspect]
     Active Substance: HYDROCHLOROTHIAZIDE\VALSARTAN
     Indication: PRODUCT USED FOR UNKNOWN INDICATION
     Dosage: 1 DF, QD (160MG VALSARTAN AND 12.5 MG HYDROCHLOROTHIAZIDE)
     Route: 065
     Dates: start: 200707, end: 200812
  4. VALSARTAN. [Suspect]
     Active Substance: VALSARTAN
     Dosage: 1 DF, QD (160MG VALSARTAN AND 12.5 MG HYDROCHLOROTHIAZIDE)
     Route: 065
     Dates: start: 201209, end: 201210
  5. VALSARTAN. [Suspect]
     Active Substance: VALSARTAN
     Dosage: 1 DF, QD (320MG VALSARTAN AND 12.5 MG HYDROCHLOROTHIAZIDE)
     Route: 065
     Dates: start: 201211, end: 201506
  6. CO-DIOVAN [Suspect]
     Active Substance: HYDROCHLOROTHIAZIDE\VALSARTAN
     Dosage: 0.5 DF, QD (320MG VALSARTAN AND 12.5 MG HYDROCHLOROTHIAZIDE)
     Route: 065
     Dates: start: 200901, end: 201202

REACTIONS (2)
  - Bladder transitional cell carcinoma [Unknown]
  - Bladder transitional cell carcinoma recurrent [Unknown]

NARRATIVE: CASE EVENT DATE: 201510
